FAERS Safety Report 9170443 (Version 1)
Quarter: 2013Q1

REPORT INFORMATION
  Report Type: Spontaneous
  Country: US (occurrence: None)
  Receive Date: 20130315
  Receipt Date: 20130315
  Transmission Date: 20140127
  Serious: No
  Sender: FDA-Public Use
  Company Number: None

PATIENT
  Age: 68 Year
  Sex: Female

DRUGS (1)
  1. BOSULIF [Suspect]
     Dosage: 3 TABS DAILY PO
     Route: 048

REACTIONS (8)
  - Muscle spasms [None]
  - Diarrhoea [None]
  - Gastrointestinal sounds abnormal [None]
  - Headache [None]
  - Feeling cold [None]
  - Back pain [None]
  - Pruritus [None]
  - Rhinalgia [None]
